FAERS Safety Report 25792623 (Version 1)
Quarter: 2025Q3

REPORT INFORMATION
  Report Type: Report from Study
  Country: US (occurrence: US)
  Receive Date: 20250911
  Receipt Date: 20250911
  Transmission Date: 20251020
  Serious: Yes (Other)
  Sender: MALLINCKRODT
  Company Number: US-MALLINCKRODT-MNK202505375

PATIENT
  Sex: Male

DRUGS (1)
  1. CORTICOTROPIN [Suspect]
     Active Substance: CORTICOTROPIN
     Indication: Iridocyclitis

REACTIONS (5)
  - Cataract [Unknown]
  - Scar [Not Recovered/Not Resolved]
  - Glaucoma [Unknown]
  - Pain in extremity [Unknown]
  - Inappropriate schedule of product administration [Unknown]
